FAERS Safety Report 9839443 (Version 1)
Quarter: 2014Q1

REPORT INFORMATION
  Report Type: Spontaneous
  Country: US (occurrence: US)
  Receive Date: 20140124
  Receipt Date: 20140124
  Transmission Date: 20141002
  Serious: Yes (Hospitalization, Other)
  Sender: FDA-Public Use
  Company Number: US-AMGEN-USASP2014003776

PATIENT
  Age: 1 Day
  Sex: Male

DRUGS (1)
  1. ENBREL [Suspect]
     Indication: PRODUCT USED FOR UNKNOWN INDICATION
     Dosage: 50 MG, TWICE WEEKLY SAME DAY
     Route: 064
     Dates: start: 20130206

REACTIONS (2)
  - Lung disorder [Recovered/Resolved]
  - Foetal disorder [Recovered/Resolved]
